FAERS Safety Report 7902966-1 (Version None)
Quarter: 2011Q4

REPORT INFORMATION
  Report Type: 
  Country: None (occurrence: None)
  Receive Date: 20111109
  Receipt Date: 20111103
  Transmission Date: 20120403
  Serious: Yes (Hospitalization)
  Sender: FDA-Public Use
  Company Number: US-GENZYME-RENA-1001363

PATIENT
  Age: 68 Year
  Sex: Female

DRUGS (1)
  1. RENAGEL [Suspect]
     Indication: HYPERPHOSPHATAEMIA
     Dosage: 0.8 G, TID
     Route: 048

REACTIONS (5)
  - UNRESPONSIVE TO STIMULI [None]
  - MUSCULOSKELETAL PAIN [None]
  - RASH [None]
  - FATIGUE [None]
  - HYPERPHOSPHATAEMIA [None]
